FAERS Safety Report 8671789 (Version 4)
Quarter: 2013Q1

REPORT INFORMATION
  Report Type: Report from Study
  Country: DE (occurrence: DE)
  Receive Date: 20120718
  Receipt Date: 20130226
  Transmission Date: 20140127
  Serious: Yes (Death, Life-Threatening, Hospitalization, Other)
  Sender: FDA-Public Use
  Company Number: DE-TEVA-330544USA

PATIENT
  Age: 61 Year
  Sex: Male
  Weight: 124 kg

DRUGS (20)
  1. TREANDA [Suspect]
     Indication: CHRONIC LYMPHOCYTIC LEUKAEMIA
     Dosage: UID/QD
     Route: 042
     Dates: start: 20120315
  2. LENALIDOMIDE [Suspect]
     Indication: CHRONIC LYMPHOCYTIC LEUKAEMIA
     Route: 048
     Dates: start: 20120315, end: 20120412
  3. RITUXIMAB [Suspect]
     Indication: CHRONIC LYMPHOCYTIC LEUKAEMIA
     Dates: start: 20120314
  4. AMLODIPINE [Concomitant]
  5. TORASEMIDE [Concomitant]
  6. ACETYLSALICYLIC ACID [Concomitant]
  7. CANDESARTAN CILEXETIL [Concomitant]
  8. HYDROCHLOROTHIAZIDE [Concomitant]
  9. METOPROLOL [Concomitant]
     Dosage: 142.5 MILLIGRAM DAILY;
  10. TAMSULOSIN [Concomitant]
     Dosage: .4 MILLIGRAM DAILY;
  11. METFORMIN [Concomitant]
     Dosage: 2 GRAM DAILY;
  12. GABAPENTIN [Concomitant]
     Dosage: 600 MILLIGRAM DAILY;
  13. SERETIDE [Concomitant]
  14. TIOTROPIUM BROMIDE [Concomitant]
     Dosage: 36 MICROGRAM DAILY;
  15. VALORON N [Concomitant]
     Dosage: 100MG/8MG
  16. PANTOPRAZOLE SODIUM [Concomitant]
     Dosage: 80 MILLIGRAM DAILY;
  17. AMPHOTERICIN B [Concomitant]
  18. ONDAPAMID [Concomitant]
  19. INDAPAMIDE [Concomitant]
     Route: 048
  20. RIFABUTIN [Concomitant]
     Route: 048

REACTIONS (4)
  - Sepsis [Fatal]
  - Septic shock [Not Recovered/Not Resolved]
  - Atypical pneumonia [Recovering/Resolving]
  - Respiratory syncytial virus infection [Recovered/Resolved]
